FAERS Safety Report 7235125-9 (Version None)
Quarter: 2011Q1

REPORT INFORMATION
  Report Type: 
  Country: None (occurrence: None)
  Receive Date: 20110114
  Receipt Date: 20110114
  Transmission Date: 20110831
  Serious: Yes (Hospitalization)
  Sender: FDA-Public Use
  Company Number: None

PATIENT
  Age: 67 Year
  Sex: Male

DRUGS (1)
  1. RITUXIMAB [Suspect]
     Indication: CHRONIC LYMPHOCYTIC LEUKAEMIA
     Dosage: 750 MG ONCE IV
     Route: 042
     Dates: start: 20101213, end: 20101213

REACTIONS (3)
  - TACHYCARDIA [None]
  - HYPOTENSION [None]
  - RESPIRATORY DEPRESSION [None]
